FAERS Safety Report 8114904-X (Version None)
Quarter: 2012Q1

REPORT INFORMATION
  Report Type: 
  Country: None (occurrence: None)
  Receive Date: 20120206
  Receipt Date: 20120123
  Transmission Date: 20120608
  Serious: Yes (Other)
  Sender: FDA-Public Use
  Company Number: CA-JNJFOC-20120200754

PATIENT
  Sex: Female

DRUGS (2)
  1. REMICADE [Suspect]
     Indication: CROHN'S DISEASE
     Route: 042
  2. ALL OTHER THERAPEUTICS [Concomitant]
     Route: 042

REACTIONS (5)
  - APHAGIA [None]
  - PAIN [None]
  - INFECTION [None]
  - ABDOMINAL WALL DISORDER [None]
  - INTESTINAL RESECTION [None]
